FAERS Safety Report 8462528-7 (Version None)
Quarter: 2012Q2

REPORT INFORMATION
  Report Type: 
  Country: None (occurrence: None)
  Receive Date: 20120625
  Receipt Date: 20120618
  Transmission Date: 20120825
  Serious: Yes (Hospitalization)
  Sender: FDA-Public Use
  Company Number: US-BAYER-2012-044615

PATIENT
  Age: 19 Year
  Sex: Female
  Weight: 45.9 kg

DRUGS (3)
  1. YAZ [Suspect]
     Dosage: UNK
     Dates: start: 20100801, end: 20100901
  2. PRILOSEC [Concomitant]
     Dosage: 40 MG,EVERY MORNING
  3. LEXAPRO [Concomitant]
     Indication: DEPRESSION
     Dosage: 20 MG EVERY MORNING

REACTIONS (7)
  - INJURY [None]
  - GENERAL PHYSICAL HEALTH DETERIORATION [None]
  - EMOTIONAL DISTRESS [None]
  - ANXIETY [None]
  - PAIN [None]
  - ANHEDONIA [None]
  - THROMBOTIC STROKE [None]
